FAERS Safety Report 14066992 (Version 1)
Quarter: 2017Q4

REPORT INFORMATION
  Report Type: Spontaneous
  Country: FR (occurrence: FR)
  Receive Date: 20171009
  Receipt Date: 20171009
  Transmission Date: 20180321
  Serious: Yes (Other)
  Sender: FDA-Public Use
  Company Number: FR-ALLERGAN-1756557US

PATIENT
  Age: 52 Year
  Sex: Female

DRUGS (5)
  1. LEVOTHYROX [Suspect]
     Active Substance: LEVOTHYROXINE
     Dosage: 25 ?G, QD
     Route: 048
     Dates: start: 20170621
  2. MILNACIPRAN - BP [Suspect]
     Active Substance: MILNACIPRAN
     Indication: MENTAL DISORDER
     Dosage: UNK
     Route: 048
     Dates: start: 201501
  3. LEVOTHYROX [Suspect]
     Active Substance: LEVOTHYROXINE
     Indication: HYPOTHYROIDISM
     Dosage: UNKNOWN
     Route: 048
     Dates: start: 201501
  4. ESCITALOPRAM OXALATE UNK [Suspect]
     Active Substance: ESCITALOPRAM OXALATE
     Indication: MENTAL DISORDER
     Dosage: UNK
     Route: 048
     Dates: start: 201501
  5. LEVOTHYROX [Suspect]
     Active Substance: LEVOTHYROXINE
     Dosage: 50 ?G, QD
     Route: 048
     Dates: start: 20170729

REACTIONS (4)
  - Pruritus generalised [Not Recovered/Not Resolved]
  - Rash macular [Not Recovered/Not Resolved]
  - Alopecia [Not Recovered/Not Resolved]
  - Constipation [Not Recovered/Not Resolved]

NARRATIVE: CASE EVENT DATE: 201708
